FAERS Safety Report 4521884-2 (Version None)
Quarter: 2004Q4

REPORT INFORMATION
  Report Type: 
  Country: None (occurrence: None)
  Receive Date: 20041207
  Receipt Date: 20041207
  Transmission Date: 20050328
  Serious: Yes (Life-Threatening, Hospitalization)
  Sender: FDA-Public Use
  Company Number: None

PATIENT
  Sex: Male
  Weight: 91.173 kg

DRUGS (2)
  1. BCNU 80MG/M2 [Suspect]
     Indication: ASTROCYTOMA
     Dosage: 170 MG, IV
     Route: 042
     Dates: start: 20041130, end: 20041202
  2. RADIATION [Concomitant]

REACTIONS (5)
  - BRAIN OEDEMA [None]
  - CONFUSIONAL STATE [None]
  - HEADACHE [None]
  - INCONTINENCE [None]
  - MENTAL STATUS CHANGES [None]
